FAERS Safety Report 10455619 (Version 3)
Quarter: 2015Q1

REPORT INFORMATION
  Report Type: Spontaneous
  Country: US (occurrence: US)
  Receive Date: 20140916
  Receipt Date: 20150316
  Transmission Date: 20150720
  Serious: Yes (Hospitalization)
  Sender: FDA-Public Use
  Company Number: US-ASTELLAS-2014US008588

PATIENT
  Age: 78 Year
  Sex: Male

DRUGS (2)
  1. XTANDI [Suspect]
     Active Substance: ENZALUTAMIDE
     Indication: PRODUCT USED FOR UNKNOWN INDICATION
     Route: 065
     Dates: start: 201404
  2. XTANDI [Suspect]
     Active Substance: ENZALUTAMIDE
     Route: 065
     Dates: start: 201501

REACTIONS (7)
  - Dysphagia [Unknown]
  - Product size issue [Unknown]
  - Abdominal infection [Unknown]
  - Weight decreased [Unknown]
  - Inappropriate schedule of drug administration [Unknown]
  - Fatigue [Unknown]
  - Influenza like illness [Unknown]

NARRATIVE: CASE EVENT DATE: 20140714
